FAERS Safety Report 23733260 (Version 8)
Quarter: 2024Q4

REPORT INFORMATION
  Report Type: Spontaneous
  Country: US (occurrence: US)
  Receive Date: 20240411
  Receipt Date: 20241108
  Transmission Date: 20250115
  Serious: Yes (Other)
  Sender: PFIZER
  Company Number: US-PFIZER INC-PV202400038595

PATIENT
  Age: 75 Year
  Sex: Female
  Weight: 68.8 kg

DRUGS (5)
  1. IBRANCE [Suspect]
     Active Substance: PALBOCICLIB
     Indication: Metaplastic breast carcinoma
     Dosage: 125 MG, CYCLIC (ON DAYS 1-21 OF A 28-DAY CYCLE)
     Route: 048
     Dates: start: 20240303
  2. IBRANCE [Suspect]
     Active Substance: PALBOCICLIB
     Indication: Breast cancer female
     Dosage: 125 MG
  3. IBRANCE [Suspect]
     Active Substance: PALBOCICLIB
     Dosage: NOT SURE IF IT WAS 100 MG OR 125 MG
     Dates: start: 20241029
  4. IBRANCE [Suspect]
     Active Substance: PALBOCICLIB
     Dosage: 1 TABLET (100 MG TOTAL) DAILY, ON 21 DAYS, OFF 7 DAYS; 28 DAY CYCLE
     Route: 048
  5. KEPPRA XR [Concomitant]
     Active Substance: LEVETIRACETAM
     Indication: Brain operation
     Dosage: UNK

REACTIONS (3)
  - Brain operation [Unknown]
  - Chronic obstructive pulmonary disease [Unknown]
  - Neoplasm progression [Unknown]

NARRATIVE: CASE EVENT DATE: 20240101
